FAERS Safety Report 17755898 (Version 3)
Quarter: 2020Q2

REPORT INFORMATION
  Report Type: Spontaneous
  Country: US (occurrence: US)
  Receive Date: 20200507
  Receipt Date: 20200625
  Transmission Date: 20200714
  Serious: No
  Sender: FDA-Public Use
  Company Number: US-SA-2020SA118199

PATIENT

DRUGS (1)
  1. LANTUS [Suspect]
     Active Substance: INSULIN GLARGINE
     Indication: TYPE 2 DIABETES MELLITUS
     Dosage: 12 IU, QD
     Route: 065

REACTIONS (5)
  - Product leakage [Unknown]
  - Product storage error [Unknown]
  - Incorrect dose administered [Unknown]
  - Blood glucose abnormal [Unknown]
  - Wrong technique in device usage process [Unknown]
